FAERS Safety Report 8342713-5 (Version None)
Quarter: 2012Q2

REPORT INFORMATION
  Report Type: 
  Country: None (occurrence: None)
  Receive Date: 20120502
  Receipt Date: 20120420
  Transmission Date: 20120825
  Serious: Yes (Hospitalization, Other)
  Sender: FDA-Public Use
  Company Number: 2012SP021786

PATIENT
  Age: 54 Year
  Sex: Male
  Weight: 74 kg

DRUGS (6)
  1. REBETOL [Suspect]
     Indication: HEPATITIS C
     Dosage: 1200 MG; QD;
     Dates: start: 20110317, end: 20110620
  2. BOCEPREVIR (SCH-503034) [Suspect]
     Indication: HEPATITIS C
     Dosage: 200 MG; QID; PO
     Route: 048
     Dates: start: 20110413, end: 20110620
  3. NOVOLOG [Suspect]
     Indication: DIABETES MELLITUS
  4. LEVOTHYROXINE SODIUM [Concomitant]
  5. LANTUS [Suspect]
     Indication: DIABETES MELLITUS
     Dosage: 26 IU; QD;
  6. VIRAFERONPEG [Suspect]
     Indication: HEPATITIS C
     Dosage: 100 MCG; QW;
     Dates: start: 20110317, end: 20110620

REACTIONS (2)
  - ENDOCARDITIS [None]
  - CONFUSIONAL STATE [None]
